FAERS Safety Report 12676858 (Version 1)
Quarter: 2016Q3

REPORT INFORMATION
  Report Type: Spontaneous
  Country: US (occurrence: US)
  Receive Date: 20160823
  Receipt Date: 20160823
  Transmission Date: 20161109
  Serious: Yes (Other)
  Sender: FDA-Public Use
  Company Number: US-SA-2016SA149709

PATIENT
  Age: 43 Year
  Sex: Female

DRUGS (3)
  1. SOLU-MEDROL [Concomitant]
     Active Substance: METHYLPREDNISOLONE SODIUM SUCCINATE
  2. AUBAGIO [Suspect]
     Active Substance: TERIFLUNOMIDE
     Route: 065
  3. SYNTHROID [Concomitant]
     Active Substance: LEVOTHYROXINE SODIUM

REACTIONS (7)
  - Rectal haemorrhage [Recovered/Resolved]
  - Diarrhoea [Unknown]
  - Chest pain [Unknown]
  - Pain [Unknown]
  - Musculoskeletal chest pain [Unknown]
  - Diverticulitis [Unknown]
  - Abdominal pain lower [Recovering/Resolving]
